FAERS Safety Report 4890688-3 (Version None)
Quarter: 2006Q1

REPORT INFORMATION
  Report Type: 
  Country: None (occurrence: None)
  Receive Date: 20060125
  Receipt Date: 20060116
  Transmission Date: 20060701
  Serious: Yes (Life-Threatening)
  Sender: FDA-Public Use
  Company Number: US-BOEHRINGER INGELHEIM PHARMACEUTICALS, INC.-2006-DE-00202GD

PATIENT
  Age: 12 Year
  Sex: Male
  Weight: 45 kg

DRUGS (4)
  1. SALBUTAMOL [Suspect]
     Indication: STATUS ASTHMATICUS
     Dosage: 2,5 MG EVERY 20 MINUTES
     Route: 055
  2. SALBUTAMOL [Suspect]
     Dosage: 10 MG/H
     Route: 055
  3. IPRATROPIUM-BROMIDE [Suspect]
     Indication: STATUS ASTHMATICUS
     Route: 055
  4. METHYLPREDNISOLONE [Suspect]
     Indication: STATUS ASTHMATICUS
     Route: 042

REACTIONS (5)
  - DRUG INEFFECTIVE [None]
  - FATIGUE [None]
  - GENERAL PHYSICAL HEALTH DETERIORATION [None]
  - HYPOVENTILATION [None]
  - RESPIRATORY ACIDOSIS [None]
